FAERS Safety Report 21853394 (Version 1)
Quarter: 2023Q1

REPORT INFORMATION
  Report Type: Spontaneous
  Country: US (occurrence: US)
  Receive Date: 20230112
  Receipt Date: 20230112
  Transmission Date: 20230417
  Serious: No
  Sender: FDA-Public Use
  Company Number: US-SA-SAC20230111000636

PATIENT
  Age: 14 Year
  Sex: Female
  Weight: 58.957 kg

DRUGS (2)
  1. FABRAZYME [Suspect]
     Active Substance: AGALSIDASE BETA
     Indication: Fabry^s disease
     Dosage: 35 MG, QOW
     Route: 042
     Dates: start: 202011
  2. FABRAZYME [Suspect]
     Active Substance: AGALSIDASE BETA
     Dosage: 25 MG, QOW
     Route: 042

REACTIONS (1)
  - Weight decreased [Unknown]

NARRATIVE: CASE EVENT DATE: 20221215
